FAERS Safety Report 25147117 (Version 1)
Quarter: 2025Q2

REPORT INFORMATION
  Report Type: Other
  Country: CN (occurrence: CN)
  Receive Date: 20250401
  Receipt Date: 20250401
  Transmission Date: 20250716
  Serious: Yes (Hospitalization)
  Sender: XCOVERY HOLDINGS
  Company Number: CN-XCO-202500006

PATIENT
  Age: 69 Year
  Sex: Female

DRUGS (2)
  1. ENSARTINIB HYDROCHLORIDE [Suspect]
     Active Substance: ENSARTINIB HYDROCHLORIDE
     Indication: Lung adenocarcinoma
     Route: 048
     Dates: start: 20250206, end: 20250220
  2. ENSARTINIB HYDROCHLORIDE [Suspect]
     Active Substance: ENSARTINIB HYDROCHLORIDE
     Indication: ALK gene rearrangement positive
     Route: 048
     Dates: start: 20250206, end: 20250220

REACTIONS (3)
  - Oral pain [Recovering/Resolving]
  - Rash [Recovered/Resolved]
  - Dyspnoea [Recovering/Resolving]

NARRATIVE: CASE EVENT DATE: 20250218
